FAERS Safety Report 9801213 (Version 2)
Quarter: 2014Q1

REPORT INFORMATION
  Report Type: Spontaneous
  Country: US (occurrence: US)
  Receive Date: 20140107
  Receipt Date: 20140131
  Transmission Date: 20141002
  Serious: Yes (Other)
  Sender: FDA-Public Use
  Company Number: US-PFIZER INC-2014001485

PATIENT
  Age: 76 Year
  Sex: Female
  Weight: 82.54 kg

DRUGS (4)
  1. LYRICA [Suspect]
     Indication: DIABETIC NEUROPATHY
     Dosage: 150 MG, 3X/DAY
     Dates: start: 2010
  2. ADVAIR [Concomitant]
     Dosage: 100/50 MCG/MCG
  3. FUROSEMIDE [Concomitant]
     Dosage: 20 MG, UNK
  4. GLIMEPIRIDE [Concomitant]
     Dosage: 2 MG, UNK

REACTIONS (2)
  - Back disorder [Unknown]
  - Body height decreased [Unknown]
